FAERS Safety Report 23334503 (Version 3)
Quarter: 2024Q1

REPORT INFORMATION
  Report Type: Spontaneous
  Country: US (occurrence: US)
  Receive Date: 20231224
  Receipt Date: 20240301
  Transmission Date: 20240410
  Serious: No
  Sender: FDA-Public Use
  Company Number: US-JNJFOC-20231175558

PATIENT
  Age: 6 Decade
  Sex: Female

DRUGS (4)
  1. MENS ROGAINE EXTRA STRENGTH [Suspect]
     Active Substance: MINOXIDIL
     Indication: Alopecia
     Route: 061
     Dates: start: 202212
  2. MENS ROGAINE EXTRA STRENGTH [Suspect]
     Active Substance: MINOXIDIL
     Dosage: PRODUCT STARTED A COUPLE OF WEEKS AGO
     Route: 061
     Dates: start: 2023
  3. MENS ROGAINE EXTRA STRENGTH [Suspect]
     Active Substance: MINOXIDIL
     Route: 061
     Dates: start: 20231007, end: 202310
  4. LIPITOR [Concomitant]
     Active Substance: ATORVASTATIN CALCIUM
     Indication: Product used for unknown indication
     Route: 065
     Dates: start: 202302

REACTIONS (6)
  - Alopecia [Unknown]
  - Off label use [Unknown]
  - Suspected counterfeit product [Unknown]
  - Product physical consistency issue [Unknown]
  - Poor quality product administered [Unknown]
  - Application site pruritus [Unknown]

NARRATIVE: CASE EVENT DATE: 20221201
